FAERS Safety Report 8052651 (Version 6)
Quarter: 2012Q4

REPORT INFORMATION
  Report Type: 
  Country: US (occurrence: US)
  Receive Date: 20110725
  Receipt Date: 20121227
  Transmission Date: 20130627
  Serious: Yes (Hospitalization, Other)
  Sender: FDA-Public Use
  Company Number: US-ASTRAZENECA-2011SE42550

PATIENT
  Age: 83 Year
  Sex: Female

DRUGS (5)
  1. NEXIUM [Suspect]
     Route: 048
  2. PRILOSEC OTC [Suspect]
     Route: 048
  3. MAGNESIUM [Concomitant]
  4. VITAMIN D [Concomitant]
  5. ZEGERID [Concomitant]

REACTIONS (13)
  - Myocardial infarction [Unknown]
  - Atrial fibrillation [Unknown]
  - Ovarian cancer [Unknown]
  - Diabetes mellitus [Unknown]
  - Peroneal nerve palsy [Unknown]
  - Dyspepsia [Unknown]
  - Spinal disorder [Unknown]
  - Nervousness [Unknown]
  - Dysgraphia [Unknown]
  - Thyroid disorder [Unknown]
  - Impaired driving ability [Unknown]
  - Cardiac disorder [Unknown]
  - Drug ineffective [Unknown]
